FAERS Safety Report 8887745 (Version 1)
Quarter: 2012Q4

REPORT INFORMATION
  Report Type: 
  Country: US (occurrence: US)
  Receive Date: 20121106
  Receipt Date: 20121106
  Transmission Date: 20130627
  Serious: Yes (Hospitalization, Other)
  Sender: FDA-Public Use
  Company Number: US-SANOFI-AVENTIS-2012SA080632

PATIENT
  Age: 53 Year
  Sex: Female
  Weight: 70.31 kg

DRUGS (9)
  1. ARAVA [Suspect]
     Route: 065
     Dates: start: 2011, end: 201110
  2. ARAVA [Suspect]
     Route: 065
  3. HUMIRA [Suspect]
     Indication: ARTHRITIC PAINS
     Route: 065
     Dates: start: 20070107
  4. FOSINOPRIL [Suspect]
     Indication: BLOOD PRESSURE HIGH
     Route: 065
     Dates: end: 2010
  5. SULFASALAZINE [Suspect]
     Route: 065
  6. SULFASALAZINE [Suspect]
     Route: 065
  7. AMLODIPINE BESILATE [Concomitant]
     Indication: BLOOD PRESSURE HIGH
     Dosage: 5mg in the morning and 2.5 mg in the evening.
  8. NEXIUM /UNK/ [Concomitant]
     Indication: ACID REFLUX (ESOPHAGEAL)
  9. METHYLDOPA [Concomitant]
     Indication: BLOOD PRESSURE HIGH
     Dates: start: 2010

REACTIONS (5)
  - Renal failure [Unknown]
  - Bone marrow failure [Unknown]
  - Back pain [Unknown]
  - Injection site bruising [Unknown]
  - Weight decreased [Unknown]
